FAERS Safety Report 9126815 (Version 2)
Quarter: 2013Q1

REPORT INFORMATION
  Report Type: Spontaneous
  Country: US (occurrence: US)
  Receive Date: 20130228
  Receipt Date: 20130312
  Transmission Date: 20140127
  Serious: No
  Sender: FDA-Public Use
  Company Number: US-TEVA-388329USA

PATIENT
  Sex: Female
  Weight: 74.91 kg

DRUGS (7)
  1. QVAR [Suspect]
     Indication: ASTHMA
     Dosage: 80 MICROGRAM DAILY;
     Dates: end: 201302
  2. ALBUTEROL [Concomitant]
     Indication: ASTHMA
     Dosage: AS NEEDED
  3. NASONEX [Concomitant]
     Route: 045
  4. LISINOPRIL [Concomitant]
     Indication: BLOOD PRESSURE
     Route: 048
  5. ATARAX [Concomitant]
     Indication: RASH
     Route: 048
  6. ATARAX [Concomitant]
     Indication: HYPERSENSITIVITY
  7. SINGULAIR [Concomitant]
     Indication: HYPERSENSITIVITY
     Route: 048

REACTIONS (1)
  - Dyspnoea [Not Recovered/Not Resolved]
